FAERS Safety Report 19462468 (Version 3)
Quarter: 2021Q3

REPORT INFORMATION
  Report Type: Report from Study
  Country: DO (occurrence: DO)
  Receive Date: 20210625
  Receipt Date: 20210819
  Transmission Date: 20211014
  Serious: Yes (Hospitalization, Other)
  Sender: FDA-Public Use
  Company Number: NVSC2021DO140004

PATIENT
  Age: 83 Year
  Sex: Female
  Weight: 180 kg

DRUGS (5)
  1. CO?DIOVAN [Suspect]
     Active Substance: HYDROCHLOROTHIAZIDE\VALSARTAN
     Indication: HYPERTENSION
     Dosage: 320/12.5 MG, QD (AT MORNING)
     Route: 065
  2. CLOPIDOGREL [Suspect]
     Active Substance: CLOPIDOGREL BISULFATE
     Indication: THROMBOSIS
     Dosage: 1 DF, QD (AT MORNING)
     Route: 065
  3. DIOCAM [Concomitant]
     Indication: DEPRESSION
     Dosage: 1 DF, QD(BEFORE BEDTIME)
     Route: 065
  4. VERAPAMIL [Concomitant]
     Active Substance: VERAPAMIL HYDROCHLORIDE
     Indication: HYPERTENSION
     Dosage: 120 MG, QD(AT NIGHT)
     Route: 065
     Dates: start: 202101
  5. DIOCAM [Concomitant]
     Indication: SLEEP DISORDER

REACTIONS (20)
  - Chronic gastritis [Unknown]
  - Arthralgia [Unknown]
  - Discomfort [Unknown]
  - Myalgia [Unknown]
  - COVID-19 [Unknown]
  - Fatigue [Unknown]
  - Headache [Unknown]
  - Ageusia [Unknown]
  - Acid peptic disease [Unknown]
  - Cough [Unknown]
  - Dyspnoea [Unknown]
  - Nausea [Unknown]
  - Intervertebral disc protrusion [Unknown]
  - Pain [Unknown]
  - Blood pressure increased [Unknown]
  - Oropharyngeal pain [Unknown]
  - Pyrexia [Unknown]
  - Hypertension [Unknown]
  - Mobility decreased [Unknown]
  - Malaise [Unknown]

NARRATIVE: CASE EVENT DATE: 20210511
